FAERS Safety Report 5422563-X (Version None)
Quarter: 2007Q3

REPORT INFORMATION
  Report Type: 
  Country: None (occurrence: None)
  Receive Date: 20070822
  Receipt Date: 20070815
  Transmission Date: 20080115
  Serious: Yes (Death, Life-Threatening, Hospitalization)
  Sender: FDA-Public Use
  Company Number: TW-BRISTOL-MYERS SQUIBB COMPANY-13883475

PATIENT
  Age: 82 Year
  Sex: Female

DRUGS (10)
  1. TREXAN (ORION) [Suspect]
     Indication: RHEUMATOID ARTHRITIS
     Route: 048
     Dates: start: 20020101, end: 20070728
  2. CELEBREX [Concomitant]
     Route: 065
     Dates: start: 20020101
  3. SENOKOT [Concomitant]
     Route: 065
     Dates: start: 20020101
  4. STILNOX [Concomitant]
     Route: 065
     Dates: start: 20020101
  5. VITAMIN B COMPLEX CAP [Concomitant]
     Route: 065
     Dates: start: 20020101
  6. DIAMICRON [Concomitant]
     Route: 065
     Dates: start: 20020101
  7. PREDNISOLONE [Concomitant]
     Route: 065
     Dates: start: 20020101
  8. DIOVAN HCT [Concomitant]
     Route: 065
     Dates: start: 20020101
  9. FOSAMAX [Concomitant]
     Route: 065
     Dates: start: 20020101
  10. PLAQUENIL [Concomitant]
     Route: 065
     Dates: start: 20020101

REACTIONS (6)
  - ASTHENIA [None]
  - DEATH [None]
  - DIZZINESS [None]
  - HYPONATRAEMIA [None]
  - NEUTROPENIA [None]
  - URINARY TRACT INFECTION [None]
